FAERS Safety Report 22109314 (Version 3)
Quarter: 2023Q2

REPORT INFORMATION
  Report Type: Spontaneous
  Country: US (occurrence: US)
  Receive Date: 20230317
  Receipt Date: 20230413
  Transmission Date: 20230721
  Serious: No
  Sender: FDA-Public Use
  Company Number: US-LUPIN PHARMACEUTICALS INC.-2023-02069

PATIENT

DRUGS (5)
  1. MISOPROSTOL [Suspect]
     Active Substance: MISOPROSTOL
     Indication: Abortion induced
     Dosage: 1 DOSAGE FORM
     Route: 065
     Dates: start: 20230209, end: 20230209
  2. MISOPROSTOL [Suspect]
     Active Substance: MISOPROSTOL
     Dosage: 1 DOSAGE FORM
     Route: 065
     Dates: start: 20230213, end: 20230213
  3. MIFEPREX [Suspect]
     Active Substance: MIFEPRISTONE
     Indication: Abortion induced
     Dosage: 1 DOSAGE FORM
     Route: 065
     Dates: start: 20230209, end: 20230209
  4. MIFEPREX [Suspect]
     Active Substance: MIFEPRISTONE
     Dosage: 1 DOSAGE FORM
     Route: 065
     Dates: start: 20230213, end: 20230213
  5. EXCEDRIN MIGRANA [Concomitant]
     Indication: Product used for unknown indication
     Dosage: UNK
     Route: 065

REACTIONS (4)
  - Off label use [Unknown]
  - Exposure during pregnancy [Unknown]
  - Extra dose administered [Unknown]
  - Drug ineffective for unapproved indication [Unknown]
